FAERS Safety Report 5005235-5 (Version None)
Quarter: 2006Q2

REPORT INFORMATION
  Report Type: 
  Country: None (occurrence: None)
  Receive Date: 20060515
  Receipt Date: 20060509
  Transmission Date: 20061013
  Serious: Yes (Life-Threatening, Hospitalization, Other)
  Sender: FDA-Public Use
  Company Number: 1997-000864

PATIENT
  Age: 50 Year
  Sex: Male

DRUGS (11)
  1. VIRACEPT [Suspect]
     Indication: HIV TEST POSITIVE
     Dosage: TID, ORAL
     Route: 048
     Dates: start: 19971114, end: 19971119
  2. VIRACEPT [Suspect]
     Indication: HIV TEST POSITIVE
     Dosage: TID, ORAL
     Route: 048
     Dates: start: 19971120, end: 19971201
  3. ZIDOVUDINE [Suspect]
     Indication: HIV TEST POSITIVE
     Dates: start: 19960312, end: 19971201
  4. EPIVIR [Suspect]
     Indication: HIV TEST POSITIVE
     Dates: start: 19960312, end: 19971201
  5. INDINAVIR (INDINAVIR) [Suspect]
     Indication: HIV TEST POSITIVE
     Dates: start: 19960812, end: 19971114
  6. DAPSONE [Concomitant]
  7. BENADRYL (DIPHENHYDRAMINE, MENTHOL, AMMONIUM CHLORIDE, SODIUM CITRATE) [Concomitant]
  8. FLEXERIL [Concomitant]
  9. IBUPROFEN [Concomitant]
  10. METHADONE HCL [Concomitant]
  11. AXID [Concomitant]

REACTIONS (8)
  - BLOOD CREATINE PHOSPHOKINASE INCREASED [None]
  - DRUG INEFFECTIVE [None]
  - ELECTROCARDIOGRAM ABNORMAL [None]
  - ELECTROCARDIOGRAM QT PROLONGED [None]
  - NODAL RHYTHM [None]
  - TORSADE DE POINTES [None]
  - VENTRICULAR ARRHYTHMIA [None]
  - VENTRICULAR TACHYCARDIA [None]
